FAERS Safety Report 21031433 (Version 2)
Quarter: 2022Q4

REPORT INFORMATION
  Report Type: Report from Study
  Country: US (occurrence: US)
  Receive Date: 20220701
  Receipt Date: 20221201
  Transmission Date: 20230112
  Serious: Yes (Hospitalization, Other)
  Sender: FDA-Public Use
  Company Number: US-TAKEDA-US201721910

PATIENT
  Age: 59 Year
  Sex: Female
  Weight: 51.701 kg

DRUGS (12)
  1. TEDUGLUTIDE [Suspect]
     Active Substance: TEDUGLUTIDE
     Indication: Short-bowel syndrome
     Dosage: 2.5 MILLIGRAM
     Route: 042
     Dates: start: 20160427, end: 20160502
  2. TEDUGLUTIDE [Suspect]
     Active Substance: TEDUGLUTIDE
     Indication: Short-bowel syndrome
     Dosage: 2.5 MILLIGRAM
     Route: 042
     Dates: start: 20160427, end: 20160502
  3. TEDUGLUTIDE [Suspect]
     Active Substance: TEDUGLUTIDE
     Indication: Short-bowel syndrome
     Dosage: 2.5 MILLIGRAM
     Route: 042
     Dates: start: 20160427, end: 20160502
  4. TEDUGLUTIDE [Suspect]
     Active Substance: TEDUGLUTIDE
     Indication: Short-bowel syndrome
     Dosage: 2.5 MILLIGRAM
     Route: 042
     Dates: start: 20160427, end: 20160502
  5. TEDUGLUTIDE [Suspect]
     Active Substance: TEDUGLUTIDE
     Dosage: 1.25 MILLIGRAM
     Route: 042
     Dates: start: 20160602, end: 20160620
  6. TEDUGLUTIDE [Suspect]
     Active Substance: TEDUGLUTIDE
     Dosage: 1.25 MILLIGRAM
     Route: 042
     Dates: start: 20160602, end: 20160620
  7. TEDUGLUTIDE [Suspect]
     Active Substance: TEDUGLUTIDE
     Dosage: 1.25 MILLIGRAM
     Route: 042
     Dates: start: 20160602, end: 20160620
  8. TEDUGLUTIDE [Suspect]
     Active Substance: TEDUGLUTIDE
     Dosage: 1.25 MILLIGRAM
     Route: 042
     Dates: start: 20160602, end: 20160620
  9. OCTREOTIDE [Concomitant]
     Active Substance: OCTREOTIDE
     Indication: Short-bowel syndrome
  10. CHOLESTYRAMINE [Concomitant]
     Active Substance: CHOLESTYRAMINE
     Indication: Blood cholesterol increased
  11. LIDOCAINE [Concomitant]
     Active Substance: LIDOCAINE
     Indication: Short-bowel syndrome
  12. HYDROCORTISONE [Concomitant]
     Active Substance: HYDROCORTISONE
     Indication: Short-bowel syndrome

REACTIONS (1)
  - Device related sepsis [Recovered/Resolved]

NARRATIVE: CASE EVENT DATE: 20170728
